FAERS Safety Report 5476302-7 (Version None)
Quarter: 2007Q4

REPORT INFORMATION
  Report Type: 
  Country: None (occurrence: None)
  Receive Date: 20071003
  Receipt Date: 20070925
  Transmission Date: 20080405
  Serious: Yes (Other)
  Sender: FDA-Public Use
  Company Number: US-PFIZER INC-2006012099

PATIENT
  Sex: Female

DRUGS (19)
  1. CELEBREX [Suspect]
     Indication: FIBROMYALGIA
     Dosage: FREQ:UNKNOWN
     Route: 065
  2. CELEBREX [Suspect]
     Indication: INFLAMMATION
  3. NEURONTIN [Suspect]
     Indication: FIBROMYALGIA
     Dosage: FREQ:UNKNOWN
     Route: 065
  4. NEURONTIN [Suspect]
     Indication: INFLAMMATION
  5. LYRICA [Suspect]
     Indication: FIBROMYALGIA
     Route: 065
  6. LYRICA [Suspect]
     Indication: INFLAMMATION
  7. LYRICA [Suspect]
     Indication: NEURALGIA
  8. ALL OTHER THERAPEUTIC PRODUCTS [Concomitant]
     Route: 065
  9. EFFEXOR [Concomitant]
     Route: 065
  10. DIAZEPAM [Concomitant]
     Route: 065
  11. HYDROCODONE [Concomitant]
     Route: 065
  12. CARDIZEM [Concomitant]
     Route: 065
  13. TOPROL-XL [Concomitant]
     Route: 065
  14. AMITRIPTYLINE HCL [Concomitant]
     Route: 065
  15. HYDROCHLOROTHIAZIDE [Concomitant]
     Route: 065
  16. ZETIA [Concomitant]
     Route: 065
  17. PREVACID [Concomitant]
     Route: 065
  18. PROVIGIL [Concomitant]
     Route: 065
  19. PREMPRO [Concomitant]
     Route: 065

REACTIONS (20)
  - BACK PAIN [None]
  - CHEST DISCOMFORT [None]
  - CLOSTRIDIAL INFECTION [None]
  - DEPRESSION [None]
  - DRUG INEFFECTIVE [None]
  - EPSTEIN-BARR VIRUS INFECTION [None]
  - FALL [None]
  - FIBROMYALGIA [None]
  - GAIT DISTURBANCE [None]
  - GASTRITIS [None]
  - HEAD INJURY [None]
  - INCREASED APPETITE [None]
  - INTERVERTEBRAL DISC INJURY [None]
  - NAUSEA [None]
  - NEURALGIA [None]
  - OEDEMA [None]
  - SCIATICA [None]
  - SOMNOLENCE [None]
  - VISION BLURRED [None]
  - WEIGHT INCREASED [None]
